FAERS Safety Report 14098989 (Version 1)
Quarter: 2017Q4

REPORT INFORMATION
  Report Type: Spontaneous
  Country: FR (occurrence: FR)
  Receive Date: 20171017
  Receipt Date: 20171017
  Transmission Date: 20180321
  Serious: Yes (Other)
  Sender: FDA-Public Use
  Company Number: FR-MERCK KGAA-2030324

PATIENT
  Age: 72 Year
  Sex: Female

DRUGS (1)
  1. NOVOTHYROX [Suspect]
     Active Substance: LEVOTHYROXINE SODIUM
     Indication: THYROIDECTOMY
     Dates: start: 20170401, end: 20170906

REACTIONS (7)
  - Enuresis [Recovering/Resolving]
  - Vertigo [Recovering/Resolving]
  - Sleep disorder [Recovering/Resolving]
  - Depressed mood [Recovering/Resolving]
  - Hot flush [Recovering/Resolving]
  - Polyuria [Recovering/Resolving]
  - Blood thyroid stimulating hormone decreased [Not Recovered/Not Resolved]

NARRATIVE: CASE EVENT DATE: 20170824
